FAERS Safety Report 8227831 (Version 2)
Quarter: 2012Q4

REPORT INFORMATION
  Report Type: 
  Country: US (occurrence: US)
  Receive Date: 20111103
  Receipt Date: 20121107
  Transmission Date: 20130627
  Serious: Yes (Other)
  Sender: FDA-Public Use
  Company Number: US-AMGEN-USASP2011040072

PATIENT
  Age: 45 Year
  Sex: Male
  Weight: 93.88 kg

DRUGS (5)
  1. ENBREL [Suspect]
     Indication: PSORIASIS
     Dosage: 50 mg, qwk
     Dates: start: 20110919
  2. ENBREL [Suspect]
     Dosage: 50 mg, qwk
     Dates: start: 20101120, end: 20110725
  3. ENBREL [Suspect]
     Dosage: 50 mg, qwk
     Dates: start: 20090923, end: 20101120
  4. ENBREL [Suspect]
     Dosage: 50 mg, 2 times/wk
     Dates: start: 20090623, end: 20090923
  5. TACLONEX [Concomitant]
     Indication: PSORIASIS
     Dosage: UNK
     Route: 061

REACTIONS (2)
  - Latent tuberculosis [Recovered/Resolved]
  - Dyspepsia [Unknown]
